FAERS Safety Report 9304203 (Version 1)
Quarter: 2013Q2

REPORT INFORMATION
  Report Type: Spontaneous
  Country: IT (occurrence: IT)
  Receive Date: 20130522
  Receipt Date: 20130522
  Transmission Date: 20140414
  Serious: Yes (Other)
  Sender: FDA-Public Use
  Company Number: IT-MYLANLABS-2013S1010427

PATIENT
  Sex: Female

DRUGS (3)
  1. FINASTERIDE [Suspect]
     Indication: HIRSUTISM
     Dosage: 5MG/DAY
     Route: 065
  2. CARBAMAZEPINE [Concomitant]
     Indication: TEMPORAL LOBE EPILEPSY
     Dosage: 800MG/DAY
     Route: 065
  3. LAMOTRIGINE [Concomitant]
     Indication: TEMPORAL LOBE EPILEPSY
     Dosage: UP TO 300MG/DAY
     Route: 065

REACTIONS (2)
  - Temporal lobe epilepsy [Recovered/Resolved]
  - Condition aggravated [Recovered/Resolved]
